FAERS Safety Report 16150686 (Version 1)
Quarter: 2019Q2

REPORT INFORMATION
  Report Type: Spontaneous
  Country: US (occurrence: US)
  Receive Date: 20190402
  Receipt Date: 20190402
  Transmission Date: 20190711
  Serious: Yes (Life-Threatening, Hospitalization)
  Sender: FDA-Public Use
  Company Number: None

PATIENT
  Age: 70 Year
  Sex: Female
  Weight: 59.8 kg

DRUGS (3)
  1. CLOPIDOGREL [Suspect]
     Active Substance: CLOPIDOGREL BISULFATE
     Indication: CEREBROVASCULAR ACCIDENT
     Route: 048
     Dates: start: 20181009, end: 20181015
  2. IRBESARTAN 300 MG [Concomitant]
     Active Substance: IRBESARTAN
     Dates: start: 20181006, end: 20181010
  3. TPA 51.1 MG [Concomitant]
     Dates: start: 20181006, end: 20181006

REACTIONS (2)
  - Angioedema [None]
  - Cerebrovascular accident [None]

NARRATIVE: CASE EVENT DATE: 20181010
